FAERS Safety Report 12111708 (Version 1)
Quarter: 2016Q1

REPORT INFORMATION
  Report Type: Spontaneous
  Country: US (occurrence: US)
  Receive Date: 20160224
  Receipt Date: 20160224
  Transmission Date: 20160526
  Serious: No
  Sender: FDA-Public Use
  Company Number: US-JAZZ-2015-US-021990

PATIENT
  Age: 65 Year
  Sex: Female

DRUGS (25)
  1. PRIALT [Suspect]
     Active Substance: ZICONOTIDE ACETATE
     Dosage: 0.006 ?G, QH
     Route: 037
  2. VITAMIN D [Concomitant]
     Active Substance: CHOLECALCIFEROL
     Dosage: 1 CAP TWO TIMES A DAY
  3. DOCUSATE SODIUM. [Concomitant]
     Active Substance: DOCUSATE SODIUM
     Dosage: 100 MG, BID
  4. ASPIRIN. [Concomitant]
     Active Substance: ASPIRIN
     Dosage: 81 MG, QD
  5. BACLOFEN. [Concomitant]
     Active Substance: BACLOFEN
  6. LYRICA [Concomitant]
     Active Substance: PREGABALIN
     Dosage: 150 MG, QD
  7. XARELTO [Concomitant]
     Active Substance: RIVAROXABAN
     Dosage: 15 MG, QD
  8. OXYCONTIN [Concomitant]
     Active Substance: OXYCODONE HYDROCHLORIDE
  9. SERTRALINE [Concomitant]
     Active Substance: SERTRALINE HYDROCHLORIDE
  10. MORPHINE SULFATE. [Suspect]
     Active Substance: MORPHINE SULFATE
     Indication: SPINAL PAIN
     Dosage: UNK MG, QH
     Route: 037
  11. SPIRIVA [Concomitant]
     Active Substance: TIOTROPIUM BROMIDE MONOHYDRATE
     Dosage: 18 ?G, QD
  12. OXYBUTYNIN CHLORIDE. [Concomitant]
     Active Substance: OXYBUTYNIN CHLORIDE
     Dosage: 5 MG, TID
  13. VISTARIL [Concomitant]
     Active Substance: HYDROXYZINE PAMOATE
     Dosage: 50 MG, QID
  14. ADVAIR HFA [Concomitant]
     Active Substance: FLUTICASONE PROPIONATE\SALMETEROL XINAFOATE
     Dosage: UNK
  15. INSULIN [Concomitant]
     Active Substance: INSULIN NOS
  16. METOPROLOL. [Concomitant]
     Active Substance: METOPROLOL
     Dosage: 25 MG, UNK
  17. LIPITOR [Concomitant]
     Active Substance: ATORVASTATIN CALCIUM
     Dosage: 10 MG, QD
  18. PRIALT [Suspect]
     Active Substance: ZICONOTIDE ACETATE
     Indication: SPINAL PAIN
     Dosage: 0.050 ?G, UNK
     Route: 037
  19. RELISTOR [Concomitant]
     Active Substance: METHYLNALTREXONE BROMIDE
     Dosage: 12 MG, QD
  20. IRON [Concomitant]
     Active Substance: IRON
     Dosage: 325 MG, QD
  21. LASIX [Concomitant]
     Active Substance: FUROSEMIDE
     Dosage: 20 MG, QD
  22. TRAZODONE HYDROCHLORIDE. [Concomitant]
     Active Substance: TRAZODONE HYDROCHLORIDE
  23. OXYCODONE [Concomitant]
     Active Substance: OXYCODONE
  24. PANTOPRAZOLE [Concomitant]
     Active Substance: PANTOPRAZOLE SODIUM
     Dosage: 40 MG, QD
  25. CYMBALTA [Concomitant]
     Active Substance: DULOXETINE HYDROCHLORIDE

REACTIONS (19)
  - Depression [Recovered/Resolved]
  - Confusional state [Recovered/Resolved]
  - Contusion [Unknown]
  - Headache [Unknown]
  - Neurological symptom [Unknown]
  - Feeling drunk [Recovered/Resolved]
  - Night sweats [Unknown]
  - Constipation [Unknown]
  - Tremor [Recovered/Resolved]
  - Dizziness [Unknown]
  - Hypotension [Unknown]
  - Incoherent [Recovered/Resolved]
  - Decreased appetite [Unknown]
  - Somnolence [Unknown]
  - Burning sensation [Recovered/Resolved]
  - Dyspnoea [Unknown]
  - Haemorrhage [Unknown]
  - Fatigue [Unknown]
  - Dysaesthesia [Unknown]

NARRATIVE: CASE EVENT DATE: 2015
